FAERS Safety Report 20289083 (Version 1)
Quarter: 2022Q1

REPORT INFORMATION
  Report Type: Spontaneous
  Country: CA (occurrence: None)
  Receive Date: 20220104
  Receipt Date: 20220104
  Transmission Date: 20220423
  Serious: Yes (Other)
  Sender: FDA-Public Use
  Company Number: CA-ROCHE-2992425

PATIENT
  Age: 50 Year
  Sex: Female
  Weight: 60 kg

DRUGS (10)
  1. MABTHERA [Suspect]
     Active Substance: RITUXIMAB
     Indication: Rheumatoid arthritis
     Route: 042
  2. ACETAMINOPHEN [Concomitant]
     Active Substance: ACETAMINOPHEN
     Route: 048
  3. ASPIRIN [Concomitant]
     Active Substance: ASPIRIN
     Route: 048
  4. DIPHENHYDRAMINE [Concomitant]
     Active Substance: DIPHENHYDRAMINE
     Route: 048
  5. HYDROXYCHLOROQUINE SULFATE [Concomitant]
     Active Substance: HYDROXYCHLOROQUINE SULFATE
     Route: 048
  6. METHYLPREDNISOLONE [Concomitant]
     Active Substance: METHYLPREDNISOLONE
     Route: 042
  7. MYCOPHENOLATE MOFETIL [Concomitant]
     Active Substance: MYCOPHENOLATE MOFETIL
  8. PREDNISONE [Concomitant]
     Active Substance: PREDNISONE
     Route: 048
  9. PREMARIN [Concomitant]
     Active Substance: ESTROGENS, CONJUGATED
  10. PROGESTERONE [Concomitant]
     Active Substance: PROGESTERONE

REACTIONS (3)
  - Blood pressure fluctuation [Recovered/Resolved]
  - Dizziness [Recovered/Resolved]
  - Throat irritation [Recovered/Resolved]
